FAERS Safety Report 24759575 (Version 1)
Quarter: 2024Q4

REPORT INFORMATION
  Report Type: Spontaneous
  Country: US (occurrence: US)
  Receive Date: 20241220
  Receipt Date: 20241220
  Transmission Date: 20250115
  Serious: No
  Sender: ROCHE
  Company Number: US-ROCHE-10000156166

PATIENT
  Sex: Female

DRUGS (1)
  1. ERIVEDGE [Suspect]
     Active Substance: VISMODEGIB
     Indication: Congenital anomaly
     Route: 048
     Dates: start: 20241203

REACTIONS (1)
  - Ageusia [Unknown]
